FAERS Safety Report 6616548-5 (Version None)
Quarter: 2010Q1

REPORT INFORMATION
  Report Type: 
  Country: None (occurrence: None)
  Receive Date: 20100305
  Receipt Date: 20100222
  Transmission Date: 20100710
  Serious: Yes (Other)
  Sender: FDA-Public Use
  Company Number: BR-PFIZER INC-2010022790

PATIENT
  Age: 44 Year
  Sex: Female
  Weight: 54 kg

DRUGS (1)
  1. GINO-FIBRASE [Suspect]
     Indication: THERAPEUTIC PROCEDURE
     Dosage: 1 APPLICATOR, 1X/DAY
     Route: 067
     Dates: start: 20100201, end: 20100201

REACTIONS (4)
  - BONE PAIN [None]
  - ERYTHEMA [None]
  - HYPERSENSITIVITY [None]
  - HYPOAESTHESIA [None]
